FAERS Safety Report 16842119 (Version 1)
Quarter: 2019Q3

REPORT INFORMATION
  Report Type: Report from Study
  Country: US (occurrence: US)
  Receive Date: 20190923
  Receipt Date: 20190923
  Transmission Date: 20191005
  Serious: Yes (Hospitalization, Other)
  Sender: FDA-Public Use
  Company Number: US-AUROBINDO-AUR-APL-2019-061989

PATIENT
  Age: 2 Year
  Sex: Male

DRUGS (1)
  1. PHENTERMINE. [Suspect]
     Active Substance: PHENTERMINE
     Indication: PRODUCT USED FOR UNKNOWN INDICATION
     Dosage: UNK
     Route: 065

REACTIONS (8)
  - Accidental exposure to product by child [Unknown]
  - Tachycardia [Unknown]
  - Toxicity to various agents [Unknown]
  - Hallucination [Unknown]
  - Agitation [Unknown]
  - Haematemesis [Unknown]
  - Hypertension [Unknown]
  - Ataxia [Unknown]
